FAERS Safety Report 21753405 (Version 2)
Quarter: 2023Q1

REPORT INFORMATION
  Report Type: Report from Study
  Country: US (occurrence: US)
  Receive Date: 20221220
  Receipt Date: 20230117
  Transmission Date: 20230417
  Serious: Yes (Hospitalization, Other)
  Sender: FDA-Public Use
  Company Number: US-UCBSA-2022071647

PATIENT
  Sex: Female

DRUGS (1)
  1. LEVETIRACETAM [Suspect]
     Active Substance: LEVETIRACETAM
     Indication: Seizure
     Dosage: 500 MILLIGRAM,2 TABLETS, 2X/DAY (BID)

REACTIONS (4)
  - Pneumonia [Not Recovered/Not Resolved]
  - Syncope [Unknown]
  - Arrhythmia [Unknown]
  - Wrong technique in product usage process [Unknown]
